FAERS Safety Report 5223940-2 (Version None)
Quarter: 2007Q1

REPORT INFORMATION
  Report Type: 
  Country: None (occurrence: None)
  Receive Date: 20070130
  Receipt Date: 20070119
  Transmission Date: 20070707
  Serious: Yes (Life-Threatening, Hospitalization)
  Sender: FDA-Public Use
  Company Number: DE-ROCHE-474546

PATIENT
  Age: 57 Year
  Sex: Female
  Weight: 57 kg

DRUGS (5)
  1. CAPECITABINE [Suspect]
     Route: 048
     Dates: start: 20060622, end: 20060927
  2. CAPECITABINE [Suspect]
     Route: 048
     Dates: end: 20060930
  3. VINORELBIN [Concomitant]
     Dosage: GIVEN ON DAY 1 AND 8 OF EACH 3 WEEK CYCLE.
     Route: 048
     Dates: start: 20060622, end: 20060930
  4. KEVATRIL [Concomitant]
     Route: 048
     Dates: start: 20060629, end: 20060930
  5. DEXAMETHASONE [Concomitant]
     Route: 048
     Dates: start: 20060629, end: 20060930

REACTIONS (12)
  - APHASIA [None]
  - BRAIN OEDEMA [None]
  - CEREBRAL VENOUS THROMBOSIS [None]
  - EPILEPSY [None]
  - HAEMORRHAGIC CEREBRAL INFARCTION [None]
  - HYPOACUSIS [None]
  - LEUKOPENIA [None]
  - MENTAL DISORDER DUE TO A GENERAL MEDICAL CONDITION [None]
  - PROTEIN C DEFICIENCY [None]
  - PYREXIA [None]
  - RETROGRADE AMNESIA [None]
  - SUBARACHNOID HAEMORRHAGE [None]
